FAERS Safety Report 4787544-8 (Version None)
Quarter: 2005Q4

REPORT INFORMATION
  Report Type: 
  Country: None (occurrence: None)
  Receive Date: 20051004
  Receipt Date: 20050922
  Transmission Date: 20060501
  Serious: Yes (Life-Threatening, Hospitalization, Other)
  Sender: FDA-Public Use
  Company Number: US-JNJFOC-20050800252

PATIENT
  Sex: Male
  Weight: 95.26 kg

DRUGS (4)
  1. REMICADE [Suspect]
     Route: 042
  2. REMICADE [Suspect]
     Route: 042
  3. REMICADE [Suspect]
     Indication: CROHN'S DISEASE
     Route: 042
  4. MERCAPTOPURINE [Concomitant]

REACTIONS (2)
  - DRUG INEFFECTIVE [None]
  - NON-HODGKIN'S LYMPHOMA [None]
